FAERS Safety Report 13471736 (Version 1)
Quarter: 2017Q2

REPORT INFORMATION
  Report Type: Report from Study
  Country: DE (occurrence: DE)
  Receive Date: 20170424
  Receipt Date: 20170424
  Transmission Date: 20170830
  Serious: Yes (Other)
  Sender: FDA-Public Use
  Company Number: DE-SUN PHARMACEUTICAL INDUSTRIES LTD-2016R1-112223

PATIENT
  Age: 60 Year
  Sex: Male

DRUGS (6)
  1. MIDAZOLAM [Suspect]
     Active Substance: MIDAZOLAM HYDROCHLORIDE
     Indication: ANAESTHESIA
     Dosage: UNK
     Route: 065
     Dates: start: 200610
  2. PROPOFOL. [Suspect]
     Active Substance: PROPOFOL
     Indication: ANAESTHESIA
     Dosage: UNK
     Route: 065
     Dates: start: 200610
  3. (S)-KETAMINE [Suspect]
     Active Substance: ESKETAMINE
     Indication: ANAESTHESIA
     Dosage: UNK
     Route: 065
     Dates: start: 200610
  4. FENDROP [Suspect]
     Active Substance: FENTANYL CITRATE
     Indication: ANAESTHESIA
     Dosage: UNK
     Route: 065
     Dates: start: 200610
  5. CEFUROXIME. [Suspect]
     Active Substance: CEFUROXIME
     Indication: ANAESTHESIA
     Dosage: UNK
     Route: 065
     Dates: start: 200610
  6. ATRACURIUM [Suspect]
     Active Substance: ATRACURIUM
     Indication: ANAESTHESIA
     Dosage: UNK
     Route: 065
     Dates: start: 200610

REACTIONS (1)
  - Anaphylactic reaction [Unknown]
